FAERS Safety Report 17670797 (Version 1)
Quarter: 2020Q2

REPORT INFORMATION
  Report Type: Spontaneous
  Country: US (occurrence: US)
  Receive Date: 20200415
  Receipt Date: 20200415
  Transmission Date: 20200713
  Serious: Yes (Death)
  Sender: FDA-Public Use
  Company Number: US-PFIZER INC-2020150193

PATIENT
  Age: 19 Year
  Sex: Female

DRUGS (3)
  1. LIDOCAINE HCL [Suspect]
     Active Substance: LIDOCAINE HYDROCHLORIDE
     Indication: LOCAL ANAESTHESIA
     Dosage: 600 MG, UNK (60 ML OF 1% LIDOCAINE)
  2. MEPERIDINE [Concomitant]
     Active Substance: MEPERIDINE
     Dosage: 100 MG, UNK (2 1/2 H PREVIOUSLY)
  3. SECOBARBITAL [Concomitant]
     Active Substance: SECOBARBITAL
     Dosage: 200 MG, UNK (3 H BEFORE THAT)

REACTIONS (3)
  - Maternal exposure during pregnancy [Unknown]
  - Cyanosis [Fatal]
  - Hypotension [Fatal]
